FAERS Safety Report 23197531 (Version 3)
Quarter: 2023Q4

REPORT INFORMATION
  Report Type: Report from Study
  Country: CN (occurrence: CN)
  Receive Date: 20231117
  Receipt Date: 20231206
  Transmission Date: 20240110
  Serious: Yes (Hospitalization)
  Sender: FDA-Public Use
  Company Number: CN-PFIZER INC-PV202300186086

PATIENT
  Age: 53 Year
  Sex: Female
  Weight: 54 kg

DRUGS (8)
  1. CYTARABINE [Suspect]
     Active Substance: CYTARABINE
     Indication: Acute myeloid leukaemia
     Dosage: 1.5 G, 1X/DAY
     Route: 041
     Dates: start: 20231021, end: 20231025
  2. INVESTIGATIONAL PRODUCT [Suspect]
     Active Substance: INVESTIGATIONAL PRODUCT
     Indication: Acute myeloid leukaemia
     Dosage: UNK
     Dates: start: 20231020, end: 20231020
  3. INVESTIGATIONAL PRODUCT [Suspect]
     Active Substance: INVESTIGATIONAL PRODUCT
     Dosage: UNK
     Dates: start: 20231021, end: 20231027
  4. MITOXANTRONE [Suspect]
     Active Substance: MITOXANTRONE HYDROCHLORIDE
     Indication: Acute myeloid leukaemia
     Dosage: 9 MG, 1X/DAY, 25/12.5 MILLIGRAM PER MILLILITRE
     Route: 041
     Dates: start: 20231021, end: 20231025
  5. ETOPOSIDE [Suspect]
     Active Substance: ETOPOSIDE
     Indication: Acute myeloid leukaemia
     Dosage: 150 MG, 1X/DAY, 0.1/5 GRAM PER MILLILITRE
     Route: 041
     Dates: start: 20231021, end: 20231023
  6. CARBAZOCHROME SODIUM SULFONATE AND SODIUM CHLORIDE [Concomitant]
     Dosage: SOLUTION
     Dates: start: 20231013, end: 20231115
  7. ETHAMSYLATE [Concomitant]
     Active Substance: ETHAMSYLATE
     Dosage: SOLUTION
     Dates: start: 20231013, end: 20231116
  8. LACTULOSE [Concomitant]
     Active Substance: LACTULOSE
     Dosage: UNK
     Dates: start: 20231022, end: 20231116

REACTIONS (1)
  - Soft tissue infection [Recovered/Resolved]

NARRATIVE: CASE EVENT DATE: 20231031
